FAERS Safety Report 24561571 (Version 4)
Quarter: 2025Q4

REPORT INFORMATION
  Report Type: Spontaneous
  Country: US (occurrence: US)
  Receive Date: 20241029
  Receipt Date: 20251002
  Transmission Date: 20260117
  Serious: Yes (Hospitalization, Other)
  Sender: PFIZER
  Company Number: US-PFIZER INC-202400280849

PATIENT
  Age: 70 Year
  Sex: Female

DRUGS (2)
  1. VELSIPITY [Suspect]
     Active Substance: ETRASIMOD ARGININE
     Dosage: 2 MG
  2. PREGABALIN [Concomitant]
     Active Substance: PREGABALIN
     Dosage: UNK

REACTIONS (4)
  - Blood sodium decreased [Unknown]
  - Respiratory symptom [Unknown]
  - Pyrexia [Unknown]
  - Sinusitis [Unknown]

NARRATIVE: CASE EVENT DATE: 20250101
